FAERS Safety Report 9176136 (Version 1)
Quarter: 2012Q4

REPORT INFORMATION
  Report Type: 
  Country: US (occurrence: US)
  Receive Date: 20120921
  Receipt Date: 20120921
  Transmission Date: 20130627
  Serious: Yes (Hospitalization)
  Sender: FDA-Public Use
  Company Number: US-RB-044698-12

PATIENT
  Age: 29 Year
  Sex: Female

DRUGS (1)
  1. SUBOXONE FILM [Suspect]
     Indication: PRODUCT USED FOR UNKNOWN INDICATION
     Dosage: Suboxone film; dosing details unknown
     Route: 065

REACTIONS (3)
  - Abortion spontaneous [Recovered/Resolved]
  - Underdose [Recovered/Resolved]
  - Exposure during pregnancy [Recovered/Resolved]
